FAERS Safety Report 9311945 (Version 1)
Quarter: 2013Q2

REPORT INFORMATION
  Report Type: Spontaneous
  Country: US (occurrence: US)
  Receive Date: 20130528
  Receipt Date: 20130528
  Transmission Date: 20140414
  Serious: Yes (Other)
  Sender: FDA-Public Use
  Company Number: US-SANOFI-AVENTIS-2013SA051533

PATIENT
  Age: 83 Year
  Sex: Female

DRUGS (2)
  1. PLAVIX [Suspect]
     Indication: TRANSIENT ISCHAEMIC ATTACK
     Route: 048
  2. CEPHALEXIN [Concomitant]

REACTIONS (5)
  - Cellulitis [Unknown]
  - Colitis [Unknown]
  - Fall [Unknown]
  - Arthralgia [Unknown]
  - Contusion [Unknown]
